FAERS Safety Report 24416989 (Version 1)
Quarter: 2024Q4

REPORT INFORMATION
  Report Type: Spontaneous
  Country: US (occurrence: US)
  Receive Date: 20241009
  Receipt Date: 20241009
  Transmission Date: 20250115
  Serious: No
  Sender: CB FLEET
  Company Number: US-PRESTIGE-202405-US-001559

PATIENT
  Age: 51 Year
  Sex: Female

DRUGS (3)
  1. MICONAZOLE NITRATE [Suspect]
     Active Substance: MICONAZOLE NITRATE
     Indication: Fungal infection
     Dosage: UNKNOWN
  2. FEZOLINETANT [Concomitant]
     Active Substance: FEZOLINETANT
     Indication: Hot flush
     Dosage: QD
  3. FEZOLINETANT [Concomitant]
     Active Substance: FEZOLINETANT
     Indication: Night sweats

REACTIONS (1)
  - Hot flush [Recovered/Resolved]
